FAERS Safety Report 9226130 (Version 1)
Quarter: 2013Q2

REPORT INFORMATION
  Report Type: Spontaneous
  Country: ES (occurrence: ES)
  Receive Date: 20130411
  Receipt Date: 20130411
  Transmission Date: 20140414
  Serious: Yes (Other)
  Sender: FDA-Public Use
  Company Number: ES-PERRIGO-13ES003567

PATIENT
  Age: 40 Year
  Sex: Female

DRUGS (2)
  1. LANSOPRAZOLE 15 MG 3T3 [Suspect]
     Indication: PRODUCT USED FOR UNKNOWN INDICATION
     Dosage: 15 MG
     Route: 048
  2. LANSOPRAZOLE 15 MG 3T3 [Suspect]
     Dosage: UNK
     Route: 065

REACTIONS (5)
  - Anaphylactic shock [Recovered/Resolved]
  - Pruritus generalised [Recovered/Resolved]
  - Face oedema [Recovered/Resolved]
  - Vomiting [Recovered/Resolved]
  - Hypotension [Recovered/Resolved]
